FAERS Safety Report 16341975 (Version 1)
Quarter: 2019Q2

REPORT INFORMATION
  Report Type: Spontaneous
  Country: US (occurrence: US)
  Receive Date: 20190522
  Receipt Date: 20190522
  Transmission Date: 20190711
  Serious: No
  Sender: FDA-Public Use
  Company Number: US-ELI_LILLY_AND_COMPANY-US201905007433

PATIENT
  Sex: Male

DRUGS (4)
  1. NOVOLOG [Concomitant]
     Active Substance: INSULIN ASPART
     Indication: TYPE 2 DIABETES MELLITUS
     Dosage: 20 INTERNATIONAL UNIT, TID
     Dates: start: 201903
  2. BASAGLAR [Suspect]
     Active Substance: INSULIN GLARGINE
     Dosage: 50 MG, DAILY (NIGHT)
     Route: 065
     Dates: start: 201903
  3. MET 500 [Concomitant]
     Indication: TYPE 2 DIABETES MELLITUS
     Dosage: UNK
     Dates: start: 1999
  4. BASAGLAR [Suspect]
     Active Substance: INSULIN GLARGINE
     Indication: TYPE 2 DIABETES MELLITUS
     Dosage: 50 MG, DAILY (NIGHT)
     Route: 065
     Dates: start: 201903

REACTIONS (7)
  - Injury associated with device [Unknown]
  - Accidental underdose [Unknown]
  - Injection site pain [Unknown]
  - Product dose omission [Unknown]
  - Vision blurred [Unknown]
  - Blood glucose increased [Unknown]
  - Pain in extremity [Unknown]
